FAERS Safety Report 9284100 (Version 1)
Quarter: 2013Q2

REPORT INFORMATION
  Report Type: Report from Study
  Country: US (occurrence: US)
  Receive Date: 20130510
  Receipt Date: 20130510
  Transmission Date: 20140414
  Serious: Yes (Hospitalization)
  Sender: FDA-Public Use
  Company Number: US-JNJFOC-20130417599

PATIENT
  Age: 71 Year
  Sex: Female
  Weight: 74.84 kg

DRUGS (3)
  1. STELARA [Suspect]
     Indication: PSORIASIS
     Route: 058
     Dates: start: 201003
  2. FISH OIL [Concomitant]
     Indication: NUTRITIONAL SUPPLEMENTATION
     Dates: start: 2012
  3. ADVAIR INHALER [Concomitant]
     Indication: MULTIPLE ALLERGIES
     Dosage: 250/50 UG IN AM AND 500/100 UG IN PM AEROSOL            250/50UG ONE SPRAY AM TWO SPRAYS IN THE PM
     Dates: start: 2012

REACTIONS (11)
  - Upper respiratory tract infection [Recovered/Resolved]
  - Chest pain [Recovered/Resolved]
  - Cough [Recovered/Resolved]
  - Dyspnoea [Recovered/Resolved]
  - Pneumonia [Recovered/Resolved]
  - Hyperhidrosis [Not Recovered/Not Resolved]
  - Weight increased [Not Recovered/Not Resolved]
  - Diarrhoea [Unknown]
  - Cough [Recovered/Resolved]
  - Myalgia [Not Recovered/Not Resolved]
  - Fatigue [Unknown]
